FAERS Safety Report 10050696 (Version 1)
Quarter: 2014Q2

REPORT INFORMATION
  Report Type: Spontaneous
  Country: US (occurrence: US)
  Receive Date: 20140401
  Receipt Date: 20140401
  Transmission Date: 20141212
  Serious: No
  Sender: FDA-Public Use
  Company Number: US-ASTRAZENECA-2013SE72465

PATIENT
  Age: 60 Year
  Sex: Female
  Weight: 82.6 kg

DRUGS (5)
  1. NEXIUM EERD [Suspect]
     Indication: DIVERTICULITIS
     Route: 048
     Dates: start: 201308, end: 2013
  2. LABETALOL [Concomitant]
     Indication: HYPERTENSION
     Route: 048
     Dates: start: 2010
  3. AVAPRO [Concomitant]
     Indication: HYPERTENSION
     Route: 048
     Dates: start: 2010
  4. HYTRIN [Concomitant]
     Indication: HYPERTENSION
     Dosage: 2 DAILY
     Route: 048
     Dates: start: 2010
  5. NORVASC [Concomitant]
     Indication: HYPERTENSION
     Route: 048
     Dates: start: 2010

REACTIONS (1)
  - Hypotension [Unknown]
